FAERS Safety Report 7581953-X (Version None)
Quarter: 2011Q2

REPORT INFORMATION
  Report Type: 
  Country: None (occurrence: None)
  Receive Date: 20110629
  Receipt Date: 20110620
  Transmission Date: 20111010
  Serious: Yes (Death, Hospitalization)
  Sender: FDA-Public Use
  Company Number: JP-AMGEN-JPNCT2011000849

PATIENT
  Age: 74 Year
  Sex: Female
  Weight: 61 kg

DRUGS (7)
  1. NERISONA [Concomitant]
     Route: 062
     Dates: start: 20101022, end: 20101104
  2. PANITUMUMAB [Suspect]
     Indication: COLORECTAL CANCER
     Dosage: 6 MG/KG, Q2WK
     Route: 041
     Dates: start: 20100818, end: 20101027
  3. METFORMIN HCL [Concomitant]
     Indication: DIABETES MELLITUS
     Dosage: 250 MG, TID
     Route: 048
     Dates: start: 20100818, end: 20110204
  4. LEUCOVORIN CALCIUM [Concomitant]
     Indication: COLORECTAL CANCER
     Route: 041
     Dates: start: 20100818, end: 20101027
  5. HUMULIN 3/7 [Concomitant]
     Indication: DIABETES MELLITUS
     Route: 058
     Dates: start: 20100818, end: 20110204
  6. FLUOROURACIL [Suspect]
     Indication: COLORECTAL CANCER
     Route: 041
     Dates: start: 20100818, end: 20101027
  7. IRINOTECAN HCL [Suspect]
     Indication: COLORECTAL CANCER
     Route: 041
     Dates: start: 20100818, end: 20101027

REACTIONS (11)
  - COLORECTAL CANCER [None]
  - BLOOD URINE PRESENT [None]
  - HYPOMAGNESAEMIA [None]
  - STOMATITIS [None]
  - SUBCUTANEOUS ABSCESS [None]
  - GLOSSITIS [None]
  - PROTEINURIA [None]
  - DERMATITIS ACNEIFORM [None]
  - PURPURA [None]
  - OEDEMA PERIPHERAL [None]
  - NASAL INFLAMMATION [None]
